FAERS Safety Report 5864424-8 (Version None)
Quarter: 2008Q3

REPORT INFORMATION
  Report Type: 
  Country: None (occurrence: None)
  Receive Date: 20080829
  Receipt Date: 20080702
  Transmission Date: 20090109
  Serious: No
  Sender: FDA-Public Use
  Company Number: US-ABBOTT-08P-163-0460480-00

PATIENT
  Sex: Male
  Weight: 95.34 kg

DRUGS (3)
  1. SIMCOR [Suspect]
     Indication: BLOOD CHOLESTEROL INCREASED
     Route: 048
     Dates: start: 20080612
  2. CARVEDILOL [Suspect]
     Indication: HYPERTENSION
     Route: 048
     Dates: start: 20080601
  3. ALISKIREN [Concomitant]
     Indication: HYPERTENSION
     Route: 048
     Dates: start: 20080601

REACTIONS (3)
  - FLUSHING [None]
  - MUSCLE SPASMS [None]
  - PRURITUS [None]
